FAERS Safety Report 19701157 (Version 1)
Quarter: 2021Q3

REPORT INFORMATION
  Report Type: Spontaneous
  Country: DE (occurrence: DE)
  Receive Date: 20210813
  Receipt Date: 20210813
  Transmission Date: 20211014
  Serious: Yes (Hospitalization, Other)
  Sender: FDA-Public Use
  Company Number: DE-SA-2021SA266390

PATIENT
  Age: 60 Year
  Sex: Male
  Weight: 58 kg

DRUGS (11)
  1. ATORVASTATIN [Concomitant]
     Active Substance: ATORVASTATIN
     Dosage: 20 MG, QD
     Route: 048
  2. OXALIPLATIN. [Suspect]
     Active Substance: OXALIPLATIN
     Dosage: ACCORDING TO THE SCHEME, INJECTION / INFUSION SOLUTION
     Route: 042
  3. FOLINSAEURE [Suspect]
     Active Substance: LEUCOVORIN
     Dosage: ACCORDING TO THE SCHEME, INJECTION / INFUSION SOLUTION
     Route: 042
  4. VIGANTOLVIT [Concomitant]
     Dosage: 1000 IU, QD
     Route: 048
  5. ULTIBRO BREEZHALER [INDACATEROL MALEATE] [Concomitant]
     Dosage: 1?0?0?0, POWDER CAPSULES
     Route: 055
  6. IRINOTECAN [Suspect]
     Active Substance: IRINOTECAN
     Dosage: ACCORDING TO THE SCHEME, INJECTION / INFUSION SOLUTION
     Route: 042
  7. FLUOROURACIL. [Suspect]
     Active Substance: FLUOROURACIL
     Dosage: ACCORDING TO THE SCHEME, INJECTION / INFUSION SOLUTION
     Route: 042
  8. METAMIZOL SODIQUE [Concomitant]
     Dosage: 40 DROPS,  1?1?1?1, DROPS
     Route: 048
  9. METFORMIN [Concomitant]
     Active Substance: METFORMIN HYDROCHLORIDE
     Dosage: 500 MG, BID
     Route: 048
  10. LEVOTHYROXINE SODIUM. [Concomitant]
     Active Substance: LEVOTHYROXINE SODIUM
     Dosage: 75 G, QD
     Route: 048
  11. FENTANYL. [Concomitant]
     Active Substance: FENTANYL
     Dosage: UNK  37.5 G / H, CHANGE EVERY THREE DAYS, TRANSDERMAL PATCH
     Route: 062

REACTIONS (4)
  - Gastritis haemorrhagic [Unknown]
  - Cachexia [Unknown]
  - General physical health deterioration [Unknown]
  - Weight decreased [Unknown]
